FAERS Safety Report 11406773 (Version 1)
Quarter: 2015Q3

REPORT INFORMATION
  Report Type: Report from Study
  Country: BR (occurrence: BR)
  Receive Date: 20150821
  Receipt Date: 20150821
  Transmission Date: 20151125
  Serious: Yes (Other)
  Sender: FDA-Public Use
  Company Number: BR-ABBVIE-15K-020-1348007-00

PATIENT
  Sex: Male

DRUGS (1)
  1. HUMIRA [Suspect]
     Active Substance: ADALIMUMAB
     Indication: ANKYLOSING SPONDYLITIS
     Route: 058

REACTIONS (4)
  - Wound [Recovered/Resolved]
  - Pulmonary mass [Unknown]
  - Inflammation of wound [Not Recovered/Not Resolved]
  - Malignant melanoma [Unknown]

NARRATIVE: CASE EVENT DATE: 2014
